FAERS Safety Report 7936029-6 (Version None)
Quarter: 2011Q4

REPORT INFORMATION
  Report Type: 
  Country: None (occurrence: None)
  Receive Date: 20111123
  Receipt Date: 20111115
  Transmission Date: 20120403
  Serious: Yes (Other)
  Sender: FDA-Public Use
  Company Number: CA-US-EMD SERONO, INC.-7094881

PATIENT
  Sex: Female

DRUGS (8)
  1. REBIF [Suspect]
     Indication: PRODUCT USED FOR UNKNOWN INDICATION
     Route: 058
     Dates: start: 20051109, end: 20110401
  2. MELOXICAM [Concomitant]
  3. KELP [Concomitant]
  4. CALCIUM [Concomitant]
  5. LOVAZA [Concomitant]
  6. MULTI-VITAMINS [Concomitant]
  7. LIPITOR [Concomitant]
  8. TRAZEPAM [Concomitant]

REACTIONS (1)
  - IDIOPATHIC THROMBOCYTOPENIC PURPURA [None]
